FAERS Safety Report 7071327-2 (Version None)
Quarter: 2010Q4

REPORT INFORMATION
  Report Type: 
  Country: None (occurrence: None)
  Receive Date: 20101028
  Receipt Date: 20101028
  Transmission Date: 20110411
  Serious: Yes (Hospitalization, Other)
  Sender: FDA-Public Use
  Company Number: None

PATIENT
  Sex: Female
  Weight: 65.7716 kg

DRUGS (1)
  1. NITROFURANTOIN [Suspect]
     Indication: CYSTITIS
     Dosage: 1 CAPSULE 2 X DAILY BY MOUTH
     Route: 048
     Dates: start: 20100614, end: 20100621

REACTIONS (14)
  - ARTHRALGIA [None]
  - ASTHENIA [None]
  - BONE PAIN [None]
  - COUGH [None]
  - DEHYDRATION [None]
  - DIARRHOEA [None]
  - DIZZINESS [None]
  - FATIGUE [None]
  - FLATULENCE [None]
  - HEADACHE [None]
  - PYREXIA [None]
  - RASH [None]
  - TINNITUS [None]
  - VISION BLURRED [None]
